FAERS Safety Report 22351972 (Version 2)
Quarter: 2024Q2

REPORT INFORMATION
  Report Type: Spontaneous
  Country: US (occurrence: US)
  Receive Date: 20230522
  Receipt Date: 20240430
  Transmission Date: 20240716
  Serious: No
  Sender: FDA-Public Use
  Company Number: US-PFIZER INC-PV202300088951

PATIENT
  Age: 79 Year
  Sex: Male

DRUGS (2)
  1. INLYTA [Suspect]
     Active Substance: AXITINIB
     Dosage: 5 MG
  2. INLYTA [Suspect]
     Active Substance: AXITINIB
     Dosage: TAKE 3MG (3 TABLETS) BY MOUTH IN THE MORNING AND 3MG (3 TABLETS) BEFORE BEDTIME

REACTIONS (1)
  - Hypertension [Unknown]
